FAERS Safety Report 5624257-4 (Version None)
Quarter: 2008Q1

REPORT INFORMATION
  Report Type: 
  Country: None (occurrence: None)
  Receive Date: 20080208
  Receipt Date: 20080208
  Transmission Date: 20080703
  Serious: Yes (Hospitalization)
  Sender: FDA-Public Use
  Company Number: None

PATIENT
  Age: 60 Year
  Sex: Male

DRUGS (1)
  1. ROSIGLITAZONE [Suspect]
     Indication: DIABETES MELLITUS
     Dosage: 4MG BID PO
     Route: 048
     Dates: start: 20060424, end: 20071020

REACTIONS (1)
  - CARDIAC FAILURE CONGESTIVE [None]
